FAERS Safety Report 6355543-0 (Version None)
Quarter: 2009Q3

REPORT INFORMATION
  Report Type: 
  Country: None (occurrence: None)
  Receive Date: 20090910
  Receipt Date: 20090825
  Transmission Date: 20100115
  Serious: Yes (Death)
  Sender: FDA-Public Use
  Company Number: 2008AL012157

PATIENT
  Age: 71 Year
  Sex: Female

DRUGS (6)
  1. DIGOXIN [Suspect]
     Dosage: PO
     Route: 048
     Dates: start: 20070601
  2. PROTONIX [Concomitant]
  3. COREG [Concomitant]
  4. PROCARDIA [Concomitant]
  5. ALBUTEROL SULFATE AUTOHALER [Concomitant]
  6. OXYGEN [Concomitant]

REACTIONS (20)
  - BLINDNESS UNILATERAL [None]
  - CACHEXIA [None]
  - CHEST PAIN [None]
  - COLITIS ISCHAEMIC [None]
  - CONVULSION [None]
  - DEHYDRATION [None]
  - DYSPNOEA [None]
  - ECONOMIC PROBLEM [None]
  - FAILURE TO THRIVE [None]
  - FAMILY STRESS [None]
  - HEPATIC ENZYME ABNORMAL [None]
  - KLEBSIELLA INFECTION [None]
  - MALNUTRITION [None]
  - MULTIPLE INJURIES [None]
  - PAIN [None]
  - RECTAL HAEMORRHAGE [None]
  - SOCIAL PROBLEM [None]
  - THERAPEUTIC AGENT TOXICITY [None]
  - URINARY TRACT INFECTION [None]
  - VISUAL ACUITY REDUCED [None]
